FAERS Safety Report 6639979-6 (Version None)
Quarter: 2010Q1

REPORT INFORMATION
  Report Type: 
  Country: None (occurrence: None)
  Receive Date: 20100318
  Receipt Date: 20100303
  Transmission Date: 20100710
  Serious: Yes (Other)
  Sender: FDA-Public Use
  Company Number: PHHY2010VE14594

PATIENT
  Age: 60 Year
  Sex: Female

DRUGS (4)
  1. ACLASTA [Suspect]
     Dosage: 5 MG PER YEAR
     Dates: start: 20090401
  2. CALCIUM [Concomitant]
     Dosage: UNK
  3. PLAVIX [Concomitant]
  4. VENASTAT [Concomitant]

REACTIONS (7)
  - DYSPNOEA [None]
  - ERYTHEMA MULTIFORME [None]
  - GINGIVAL DISORDER [None]
  - MONOCYTE COUNT INCREASED [None]
  - PAIN [None]
  - PYREXIA [None]
  - WHITE BLOOD CELL COUNT DECREASED [None]
